FAERS Safety Report 19835807 (Version 2)
Quarter: 2024Q2

REPORT INFORMATION
  Report Type: Spontaneous
  Country: US (occurrence: US)
  Receive Date: 20210916
  Receipt Date: 20240621
  Transmission Date: 20240715
  Serious: Yes (Hospitalization)
  Sender: FDA-Public Use
  Company Number: US-SA-SAC20210914001485

PATIENT
  Age: 83 Year
  Sex: Female

DRUGS (1)
  1. DUPIXENT [Suspect]
     Active Substance: DUPILUMAB
     Indication: Asthma
     Dosage: 300 MG, QOW
     Route: 058
     Dates: start: 201910

REACTIONS (3)
  - Hospitalisation [Unknown]
  - Drug ineffective [Unknown]
  - Product use issue [Unknown]

NARRATIVE: CASE EVENT DATE: 20191001
